FAERS Safety Report 7335769-X (Version None)
Quarter: 2011Q1

REPORT INFORMATION
  Report Type: 
  Country: None (occurrence: None)
  Receive Date: 20110307
  Receipt Date: 20110301
  Transmission Date: 20110831
  Serious: Yes (Death)
  Sender: FDA-Public Use
  Company Number: JP-PFIZER INC-2011044713

PATIENT
  Age: 70 Year
  Sex: Female

DRUGS (1)
  1. PEGVISOMANT [Suspect]
     Indication: ACROMEGALY
     Dosage: UNK
     Route: 058
     Dates: start: 20071129

REACTIONS (1)
  - DEATH [None]
